FAERS Safety Report 9833998 (Version 1)
Quarter: 2014Q1

REPORT INFORMATION
  Report Type: Spontaneous
  Country: GB (occurrence: GB)
  Receive Date: 20140122
  Receipt Date: 20140122
  Transmission Date: 20141002
  Serious: Yes (Other)
  Sender: FDA-Public Use
  Company Number: GB-MERCK-1401GBR008065

PATIENT
  Age: 26 Year
  Sex: Male
  Weight: 69.85 kg

DRUGS (1)
  1. NASONEX [Suspect]
     Indication: CHRONIC SINUSITIS
     Dosage: 1 DF, 1/1 DAYS
     Route: 045
     Dates: start: 20131023, end: 20140105

REACTIONS (4)
  - Aggression [Recovering/Resolving]
  - Anxiety [Recovering/Resolving]
  - Mood swings [Recovering/Resolving]
  - Paranoia [Recovering/Resolving]
